FAERS Safety Report 4461548-7 (Version None)
Quarter: 2004Q3

REPORT INFORMATION
  Report Type: 
  Country: None (occurrence: None)
  Receive Date: 20040907
  Receipt Date: 20040520
  Transmission Date: 20050211
  Serious: Yes (Other)
  Sender: FDA-Public Use
  Company Number: 04-184-0977

PATIENT
  Age: 74 Year
  Sex: Female
  Weight: 90.7194 kg

DRUGS (5)
  1. POLYMYXIN B SULFATE [Suspect]
     Dates: start: 20040501
  2. DOXYCYCLINE [Concomitant]
  3. DIFLUCAN [Concomitant]
  4. INSULIN [Concomitant]
  5. CEFIPIME [Concomitant]

REACTIONS (1)
  - NEPHROPATHY TOXIC [None]
